FAERS Safety Report 8283464-5 (Version None)
Quarter: 2012Q2

REPORT INFORMATION
  Report Type: 
  Country: None (occurrence: None)
  Receive Date: 20120413
  Receipt Date: 20120309
  Transmission Date: 20120825
  Serious: Yes (Other)
  Sender: FDA-Public Use
  Company Number: US-ROCHE-791297

PATIENT
  Sex: Female
  Weight: 65.83 kg

DRUGS (4)
  1. ACCUTANE [Suspect]
  2. ACCUTANE [Suspect]
     Dates: start: 20030301, end: 20030701
  3. IBUPROFEN (ADVIL) [Concomitant]
  4. ACCUTANE [Suspect]
     Indication: ACNE
     Route: 065
     Dates: start: 20030201, end: 20030301

REACTIONS (10)
  - URINARY TRACT INFECTION [None]
  - DYSURIA [None]
  - FISTULA [None]
  - VIRAL PHARYNGITIS [None]
  - INFLAMMATORY BOWEL DISEASE [None]
  - DEPRESSION [None]
  - ARTHRITIS [None]
  - LIP DRY [None]
  - EMOTIONAL DISTRESS [None]
  - CROHN'S DISEASE [None]
